FAERS Safety Report 5468852-4 (Version None)
Quarter: 2007Q3

REPORT INFORMATION
  Report Type: 
  Country: None (occurrence: None)
  Receive Date: 20070926
  Receipt Date: 20070917
  Transmission Date: 20080115
  Serious: Yes (Other)
  Sender: FDA-Public Use
  Company Number: US-PFIZER INC-2007078357

PATIENT
  Sex: Female

DRUGS (4)
  1. CAMPTOSAR [Suspect]
     Indication: CENTRAL NERVOUS SYSTEM NEOPLASM
  2. MICARDIS [Concomitant]
  3. ESTRACE [Concomitant]
  4. ASCORBIC ACID [Concomitant]

REACTIONS (1)
  - VISUAL ACUITY REDUCED [None]
